FAERS Safety Report 13521330 (Version 1)
Quarter: 2017Q2

REPORT INFORMATION
  Report Type: Spontaneous
  Country: US (occurrence: US)
  Receive Date: 20170508
  Receipt Date: 20170508
  Transmission Date: 20170830
  Serious: No
  Sender: FDA-Public Use
  Company Number: US-PFIZER INC-2017195370

PATIENT
  Sex: Female

DRUGS (2)
  1. XELJANZ XR [Suspect]
     Active Substance: TOFACITINIB CITRATE
     Dosage: 11 MG, DAILY
  2. AMIODARONE HCL [Suspect]
     Active Substance: AMIODARONE HYDROCHLORIDE
     Dosage: UNK

REACTIONS (8)
  - Tenderness [Unknown]
  - Oedema peripheral [Unknown]
  - Psoriasis [Unknown]
  - Pain [Unknown]
  - Arthralgia [Unknown]
  - Palpitations [Unknown]
  - Weight increased [Unknown]
  - Heart rate irregular [Unknown]
